FAERS Safety Report 12934879 (Version 1)
Quarter: 2016Q4

REPORT INFORMATION
  Report Type: Report from Study
  Country: US (occurrence: US)
  Receive Date: 20161112
  Receipt Date: 20161112
  Transmission Date: 20170207
  Serious: Yes (Death, Other)
  Sender: FDA-Public Use
  Company Number: US-REGENERON PHARMACEUTICALS, INC.-2016-23724

PATIENT

DRUGS (2)
  1. TRELSTAR [Concomitant]
     Active Substance: TRIPTORELIN PAMOATE
     Indication: PRODUCT USED FOR UNKNOWN INDICATION
     Dosage: 22.5 MG MILLIGRAM(S), INJ
  2. EYLEA [Suspect]
     Active Substance: AFLIBERCEPT
     Indication: PROSTATE CANCER
     Dosage: UNK, USE AS DIRECTED BY PHYSICIAN
     Dates: start: 20151026

REACTIONS (2)
  - Death [Fatal]
  - Off label use [Unknown]
